FAERS Safety Report 10388930 (Version 1)
Quarter: 2014Q1

REPORT INFORMATION
  Report Type: Spontaneous
  Country: US (occurrence: None)
  Receive Date: 20140306
  Receipt Date: 20140306
  Transmission Date: 20141002
  Serious: Yes (Hospitalization)
  Sender: FDA-Public Use
  Company Number: 163-21880-13115082

PATIENT
  Age: 66 Year
  Sex: Male

DRUGS (21)
  1. REVLIMID (LENALIDOMIDE) (10 MILLIGRAM, CAPSULES) [Suspect]
     Indication: PLASMA CELL MYELOMA
     Route: 048
     Dates: start: 200909
  2. CYCLOSPORINE (CICLOSPORIN) [Concomitant]
  3. ASPIRIN (ACETYLSALICYLIC ACID) (500 MILLIGRAM, TABLETS) [Concomitant]
  4. ATIVAN (LORAZEPAM) (TABLETS) [Concomitant]
  5. VITAMIN B6 (PYRIDOXINE HYDROCHLORIDE) [Concomitant]
  6. CARFILZOMIB (INJECTION) [Concomitant]
  7. CYCLOBENZAPINE (TABLETS) [Concomitant]
  8. DEXAMETHASONE (4 MILLIGRAM, TABLETS) [Concomitant]
  9. KYTRIL (GRANISETRON) (TABLETS) [Concomitant]
  10. KYTRIL (GRANISETRON) (TABLETS) [Concomitant]
  11. HYDROCHLOROTHIAZIDE (TABLETS) [Concomitant]
  12. IBUPROFEN (TABLETS) [Concomitant]
  13. LEVAQUIN (LEVOFLOXACIN) (TABLETS) [Concomitant]
  14. LISINOPRIL (TABLETS) (LISINOPRIL) [Concomitant]
  15. LYRICA (PREGABALIN) (CAPSULES) [Concomitant]
  16. OMEPRAZOLE (CAPSULES) [Concomitant]
  17. COMPAZINE (PROCHLORPERAZINE EDISYLATE) (TABLETS) [Concomitant]
  18. QUININE SULFATE (300 MILLIGRAM, CAPSULES) [Concomitant]
  19. KENALOG (TRIAMCINOLONE ACETONIDE) 9CREAM) [Concomitant]
  20. VALACYCLOVIR (VALACICLOVIR HYDROCHLORIDE) (TABLETS) [Concomitant]
  21. ZITHROMAX Z-PAK (AZITHROMYCIN) (TABLETS) [Concomitant]

REACTIONS (3)
  - Bronchitis [None]
  - Diarrhoea [None]
  - Hypotension [None]
